FAERS Safety Report 6568405-0 (Version None)
Quarter: 2010Q1

REPORT INFORMATION
  Report Type: 
  Country: None (occurrence: None)
  Receive Date: 20100128
  Receipt Date: 20100115
  Transmission Date: 20100710
  Serious: Yes (Other)
  Sender: FDA-Public Use
  Company Number: 2010AP000154

PATIENT
  Age: 26 Year
  Sex: Female

DRUGS (3)
  1. CLARITHROMYCIN [Suspect]
  2. AMOXICILLIN AND CLAVULANATE POTASSIUM [Suspect]
  3. OSELTAMIVIR PHOSPHATE [Suspect]

REACTIONS (5)
  - CAESAREAN SECTION [None]
  - CONDITION AGGRAVATED [None]
  - DRUG EXPOSURE DURING PREGNANCY [None]
  - FOETAL DISTRESS SYNDROME [None]
  - HYPOXIA [None]
